FAERS Safety Report 16055593 (Version 1)
Quarter: 2019Q1

REPORT INFORMATION
  Report Type: Spontaneous
  Country: CN (occurrence: CN)
  Receive Date: 20190311
  Receipt Date: 20190311
  Transmission Date: 20190418
  Serious: Yes (Other)
  Sender: FDA-Public Use
  Company Number: CN-ROCHE-2264846

PATIENT
  Age: 56 Year
  Sex: Male

DRUGS (10)
  1. FLUOROURACIL. [Concomitant]
     Active Substance: FLUOROURACIL
     Dosage: CIV(46H) ; D1-2
     Route: 042
     Dates: start: 20160123
  2. CETUXIMAB. [Concomitant]
     Active Substance: CETUXIMAB
     Route: 065
     Dates: start: 20130916
  3. FLUOROURACIL. [Concomitant]
     Active Substance: FLUOROURACIL
     Dosage: D1
     Route: 042
     Dates: start: 20130916
  4. L-OHP [Concomitant]
     Active Substance: OXALIPLATIN
     Dosage: D1
     Route: 041
     Dates: start: 20130916
  5. CFI 400945 [Concomitant]
     Dosage: D1
     Route: 041
     Dates: start: 20160123
  6. FLUOROURACIL. [Concomitant]
     Active Substance: FLUOROURACIL
     Dosage: CIV(46H) ; D1-2
     Route: 042
     Dates: start: 20130916
  7. CFI 400945 [Concomitant]
     Dosage: D1
     Route: 041
     Dates: start: 20130916
  8. FLUOROURACIL. [Concomitant]
     Active Substance: FLUOROURACIL
     Dosage: D1
     Route: 042
     Dates: start: 20160123
  9. L-OHP [Concomitant]
     Active Substance: OXALIPLATIN
     Dosage: D1
     Route: 041
     Dates: start: 20160123
  10. CAPECITABINE. [Suspect]
     Active Substance: CAPECITABINE
     Indication: RECTAL CANCER METASTATIC
     Dosage: Q3W
     Route: 048
     Dates: start: 20131210

REACTIONS (3)
  - Rectal cancer [Unknown]
  - Anastomotic complication [Unknown]
  - Recurrent cancer [Unknown]

NARRATIVE: CASE EVENT DATE: 2015
